FAERS Safety Report 13778783 (Version 2)
Quarter: 2017Q3

REPORT INFORMATION
  Report Type: Spontaneous
  Country: CH (occurrence: CH)
  Receive Date: 20170721
  Receipt Date: 20170725
  Transmission Date: 20171127
  Serious: Yes (Death)
  Sender: FDA-Public Use
  Company Number: PHHY2017CH106574

PATIENT
  Sex: Male

DRUGS (3)
  1. HYCAMTIN [Suspect]
     Active Substance: TOPOTECAN HYDROCHLORIDE
     Indication: PANCREATIC NEUROENDOCRINE TUMOUR METASTATIC
     Dosage: 6 MG, ONCE/SINGLE
     Route: 042
     Dates: start: 20160307
  2. HYCAMTIN [Suspect]
     Active Substance: TOPOTECAN HYDROCHLORIDE
     Dosage: 4 MG, ONCE/SINGLE
     Route: 042
     Dates: start: 20160322, end: 20160322
  3. HYCAMTIN [Suspect]
     Active Substance: TOPOTECAN HYDROCHLORIDE
     Dosage: 4 MG, ONCE/SINGLE
     Route: 042
     Dates: start: 20160315

REACTIONS (3)
  - Product use in unapproved indication [Unknown]
  - Pancreatic neuroendocrine tumour metastatic [Fatal]
  - Malignant neoplasm progression [Fatal]

NARRATIVE: CASE EVENT DATE: 20160307
